FAERS Safety Report 8781266 (Version 2)
Quarter: 2012Q4

REPORT INFORMATION
  Report Type: 
  Country: US (occurrence: US)
  Receive Date: 20120913
  Receipt Date: 20120913
  Transmission Date: 20130627
  Serious: No
  Sender: FDA-Public Use
  Company Number: US-009507513-2012SP031993

PATIENT

DRUGS (1)
  1. FOLLISTIM AQ CARTRIDGE [Suspect]
     Indication: ASSISTED FERTILISATION
     Dosage: 300 IU, UNK
     Route: 051

REACTIONS (1)
  - Therapeutic product ineffective [Unknown]
